FAERS Safety Report 9183605 (Version 1)
Quarter: 2013Q1

REPORT INFORMATION
  Report Type: Spontaneous
  Country: US (occurrence: US)
  Receive Date: 20130322
  Receipt Date: 20130322
  Transmission Date: 20140127
  Serious: Yes (Death)
  Sender: FDA-Public Use
  Company Number: US-BRISTOL-MYERS SQUIBB COMPANY-16566267

PATIENT
  Age: 52 Year
  Sex: Female
  Weight: 56.6 kg

DRUGS (4)
  1. ERBITUX [Suspect]
     Indication: LUNG CARCINOMA CELL TYPE UNSPECIFIED RECURRENT
     Dosage: LOADING DOSE:640MG,15MAR12?ERBITUX 400MG,29MAR12?ERBITUX 380MG,05APR12
     Dates: start: 20120315
  2. CISPLATIN [Suspect]
     Indication: LUNG CARCINOMA CELL TYPE UNSPECIFIED RECURRENT
  3. CARBOPLATIN [Suspect]
     Indication: LUNG NEOPLASM MALIGNANT
  4. TAXOTERE [Suspect]
     Indication: LUNG NEOPLASM MALIGNANT

REACTIONS (1)
  - Malignant neoplasm progression [Fatal]
